FAERS Safety Report 15353181 (Version 1)
Quarter: 2018Q3

REPORT INFORMATION
  Report Type: Spontaneous
  Country: None (occurrence: US)
  Receive Date: 20180905
  Receipt Date: 20180905
  Transmission Date: 20181010
  Serious: No
  Sender: FDA-Public Use
  Company Number: US-AKRON, INC.-2054648

PATIENT
  Sex: Male

DRUGS (1)
  1. ATROPINE SULFATE OPHTHALMIC SOLUTION [Suspect]
     Active Substance: ATROPINE SULFATE
     Route: 047

REACTIONS (2)
  - Eye irritation [Unknown]
  - Eye pain [Unknown]
